FAERS Safety Report 24774345 (Version 1)
Quarter: 2024Q4

REPORT INFORMATION
  Report Type: Spontaneous
  Country: GB (occurrence: GB)
  Receive Date: 20241225
  Receipt Date: 20241225
  Transmission Date: 20250115
  Serious: Yes (Life-Threatening, Hospitalization, Other)
  Sender: ORGANON
  Company Number: None

PATIENT
  Age: 55 Year
  Sex: Female
  Weight: 48 kg

DRUGS (9)
  1. ALENDRONATE SODIUM [Suspect]
     Active Substance: ALENDRONATE SODIUM
     Dosage: 1 DOSAGE FORM,ONE TO BE TAKEN ON THE SAME DAY EACH WEEK  (QW)
     Dates: start: 20170104, end: 20241106
  2. IBUPROFEN [Concomitant]
     Active Substance: IBUPROFEN
     Dosage: 30 GRAM (APPLY UP TO THREE TIMES A DAY)
     Dates: start: 20240924, end: 20241106
  3. CHLORHEXIDINE HYDROCHLORIDE\NEOMYCIN SULFATE [Concomitant]
     Active Substance: CHLORHEXIDINE HYDROCHLORIDE\NEOMYCIN SULFATE
     Dosage: 15 GRAM (APPLY TO NOSTRILS FOUR TIMES A DAY FOR 10 DAYS) (ALLIANCE PHARMACEUTICALS LTD)  )
     Dates: start: 20241009, end: 20241127
  4. COCODAMOL [Concomitant]
     Active Substance: ACETAMINOPHEN\CODEINE PHOSPHATE
     Dosage: ONE OR TWO TO BE TAKEN FOUR TIMES A DAY WHEN REQUIRED
     Dates: start: 20241028, end: 20241105
  5. METRONIDAZOLE [Concomitant]
     Active Substance: METRONIDAZOLE
     Dosage: ONE TO BE TAKEN THREE TIMES A DAY (TID
     Dates: start: 20241108, end: 20241207
  6. CODEINE [Concomitant]
     Active Substance: CODEINE
     Dosage: ONE TO BE TAKEN THREE OR FOUR TIMES DAILY
     Dates: start: 20241108, end: 20241114
  7. IVABRADINE [Concomitant]
     Active Substance: IVABRADINE
     Dosage: 2.5 MILLIGRAM, (ONE TO BE TAKEN TWICE A DAY)Q12H
     Dates: start: 20241114
  8. SENNA LEAF [Concomitant]
     Active Substance: SENNA LEAF
     Dosage: TWO TO BE TAKEN AT NIGHT IN BLISTER
     Dates: start: 20241114
  9. AYMES SHAKE [Concomitant]
     Dosage: TAKE ONE A DAY MIX WITH FULL FAT MILK DIFFRENT FLAVOURS PLEASE
     Dates: start: 20241211

REACTIONS (3)
  - Osteonecrosis of jaw [Not Recovered/Not Resolved]
  - Abscess jaw [Unknown]
  - Discharge [Unknown]
